FAERS Safety Report 15829789 (Version 1)
Quarter: 2019Q1

REPORT INFORMATION
  Report Type: Spontaneous
  Country: US (occurrence: US)
  Receive Date: 20190115
  Receipt Date: 20190115
  Transmission Date: 20190417
  Serious: No
  Sender: FDA-Public Use
  Company Number: US-BAUSCH-BL-2018-003740

PATIENT
  Age: 16 Year
  Sex: Male
  Weight: 68.1 kg

DRUGS (3)
  1. ZYLET [Suspect]
     Active Substance: LOTEPREDNOL ETABONATE\TOBRAMYCIN
     Dosage: (FIRST BOTTLE)
     Route: 047
     Dates: start: 2018
  2. ZYLET [Suspect]
     Active Substance: LOTEPREDNOL ETABONATE\TOBRAMYCIN
     Dosage: (NEXT BOTTLE)
     Route: 047
     Dates: start: 20180111, end: 2018
  3. ZYLET [Suspect]
     Active Substance: LOTEPREDNOL ETABONATE\TOBRAMYCIN
     Indication: CORNEAL DISORDER
     Dosage: LEFT EYE?(FIRST BOTTLE)
     Route: 047
     Dates: start: 201712

REACTIONS (2)
  - Ocular hyperaemia [Recovered/Resolved]
  - Eye pain [Recovered/Resolved]

NARRATIVE: CASE EVENT DATE: 201801
